FAERS Safety Report 9520954 (Version 3)
Quarter: 2013Q3

REPORT INFORMATION
  Report Type: Spontaneous
  Country: US (occurrence: US)
  Receive Date: 20130913
  Receipt Date: 20130923
  Transmission Date: 20140515
  Serious: No
  Sender: FDA-Public Use
  Company Number: US-PFIZER INC-2013225303

PATIENT
  Age: 38 Year
  Sex: Female
  Weight: 48.53 kg

DRUGS (3)
  1. GENOTROPIN [Suspect]
     Indication: BLOOD GROWTH HORMONE DECREASED
     Dosage: 0.2 MG, 1X/DAY
     Route: 030
     Dates: start: 201306
  2. LEVOTHYROXINE [Concomitant]
     Indication: THYROID DISORDER
     Dosage: 75 UG, 1X/DAY
     Route: 048
  3. PREDNISONE [Concomitant]
     Indication: BLOOD CORTISOL DECREASED
     Dosage: 5 MG, 1X/DAY

REACTIONS (4)
  - Weight decreased [Unknown]
  - Drug dispensing error [Unknown]
  - Incorrect dose administered [Unknown]
  - Incorrect route of drug administration [Unknown]
